FAERS Safety Report 23745655 (Version 1)
Quarter: 2024Q2

REPORT INFORMATION
  Report Type: Spontaneous
  Country: US (occurrence: US)
  Receive Date: 20240416
  Receipt Date: 20240416
  Transmission Date: 20240716
  Serious: Yes (Hospitalization, Other)
  Sender: FDA-Public Use
  Company Number: US-DRL-USA-LIT/USA/24/0005613

PATIENT
  Age: 40 Year
  Sex: Female

DRUGS (4)
  1. COLCHICINE [Suspect]
     Active Substance: COLCHICINE
     Indication: Differentiation syndrome
  2. IBUPROFEN [Suspect]
     Active Substance: IBUPROFEN
     Indication: Differentiation syndrome
  3. PREDNISONE [Suspect]
     Active Substance: PREDNISONE
     Indication: Pericardial effusion
  4. ARSENIC [Concomitant]
     Active Substance: ARSENIC
     Indication: Acute promyelocytic leukaemia

REACTIONS (3)
  - Pericarditis [Recovering/Resolving]
  - COVID-19 [Recovering/Resolving]
  - Drug ineffective [Unknown]
